FAERS Safety Report 5957512-9 (Version None)
Quarter: 2008Q4

REPORT INFORMATION
  Report Type: 
  Country: None (occurrence: None)
  Receive Date: 20081112
  Receipt Date: 20081106
  Transmission Date: 20090506
  Serious: Yes (Other)
  Sender: FDA-Public Use
  Company Number: CHPA2008US18874

PATIENT
  Age: 70 Year
  Sex: Male

DRUGS (3)
  1. VOLTAREN [Suspect]
     Indication: ARTHRITIS
     Dosage: 2 G, BID, TOPICAL
     Route: 061
  2. ISOSORBIDE (ISOSORBIDE) [Concomitant]
  3. PROCARDIA [Concomitant]

REACTIONS (3)
  - BLINDNESS TRANSIENT [None]
  - CORNEAL DEPOSITS [None]
  - THROMBOSIS [None]
